FAERS Safety Report 8587356-3 (Version None)
Quarter: 2012Q3

REPORT INFORMATION
  Report Type: 
  Country: None (occurrence: None)
  Receive Date: 20120810
  Receipt Date: 20120215
  Transmission Date: 20120928
  Serious: No
  Sender: FDA-Public Use
  Company Number: US-ASTRAZENECA-2012SE10323

PATIENT
  Age: 75 Year
  Sex: Female
  Weight: 106.6 kg

DRUGS (4)
  1. PAIN KILLERS [Concomitant]
  2. VITAMIN TAB [Concomitant]
  3. ARIMIDEX [Suspect]
     Indication: BREAST CANCER
     Route: 048
     Dates: start: 20110501
  4. SUPPLEMENTS [Concomitant]

REACTIONS (5)
  - PAIN IN EXTREMITY [None]
  - SKIN DISCOLOURATION [None]
  - LOCALISED INFECTION [None]
  - HEARING IMPAIRED [None]
  - OEDEMA PERIPHERAL [None]
